FAERS Safety Report 4872014-9 (Version None)
Quarter: 2005Q4

REPORT INFORMATION
  Report Type: 
  Country: None (occurrence: None)
  Receive Date: 20051230
  Receipt Date: 20051220
  Transmission Date: 20060501
  Serious: Yes (Other)
  Sender: FDA-Public Use
  Company Number: 2005BI013853

PATIENT
  Age: 54 Year
  Sex: Female

DRUGS (8)
  1. AVONEX [Suspect]
     Indication: MULTIPLE SCLEROSIS
     Dosage: 30 UG; QW; IM
     Route: 030
     Dates: start: 20041003
  2. OXYBUTYNIN [Concomitant]
  3. NEURONTIN [Concomitant]
  4. LEXAPRO [Concomitant]
  5. CARDIZEM [Concomitant]
  6. MOBIC [Concomitant]
  7. VALIUM [Concomitant]
  8. MIRAPEX [Concomitant]

REACTIONS (3)
  - HYPERTENSION [None]
  - UNEVALUABLE EVENT [None]
  - VENTRICULAR HYPERTROPHY [None]
